FAERS Safety Report 12094849 (Version 1)
Quarter: 2016Q1

REPORT INFORMATION
  Report Type: Spontaneous
  Country: SE (occurrence: SE)
  Receive Date: 20160219
  Receipt Date: 20160219
  Transmission Date: 20160526
  Serious: No
  Sender: FDA-Public Use
  Company Number: SE-PERNIX THERAPEUTICS-2014PT000168

PATIENT

DRUGS (4)
  1. DICLOFENAC SODIUM. [Concomitant]
     Active Substance: DICLOFENAC SODIUM
     Dosage: 50 MG, EVERY OTHER DAY
  2. ALVEDON [Concomitant]
     Active Substance: ACETAMINOPHEN
     Dosage: 665 MG MODIFIED RELEASE TABLET, TWO TABLETS EVERY OTHER DAY
  3. CEDAX [Suspect]
     Active Substance: CEFTIBUTEN DIHYDRATE
     Dosage: 400 MG, DAILY
     Route: 063
     Dates: start: 20141115, end: 20141122
  4. CEDAX [Suspect]
     Active Substance: CEFTIBUTEN DIHYDRATE
     Dosage: 400 MG, TWICE DAILY
     Route: 063
     Dates: start: 20141112, end: 20141114

REACTIONS (2)
  - Infantile colic [Not Recovered/Not Resolved]
  - Exposure during breast feeding [Recovered/Resolved]

NARRATIVE: CASE EVENT DATE: 20141112
